FAERS Safety Report 10215246 (Version 1)
Quarter: 2014Q2

REPORT INFORMATION
  Report Type: Spontaneous
  Country: IL (occurrence: IL)
  Receive Date: 20140603
  Receipt Date: 20140603
  Transmission Date: 20141212
  Serious: Yes (Other)
  Sender: FDA-Public Use
  Company Number: PHHY2014IL066915

PATIENT
  Sex: Male

DRUGS (3)
  1. CERTICAN [Suspect]
     Indication: HEART TRANSPLANT
     Dosage: UNK UKN, BID
     Route: 048
     Dates: start: 200911, end: 20140528
  2. CICLOSPORIN [Suspect]
     Indication: HEART TRANSPLANT
     Dosage: UNK
     Dates: start: 200911
  3. NSAID^S [Concomitant]
     Indication: GOUT
     Dosage: UNK

REACTIONS (2)
  - Heart transplant rejection [Unknown]
  - Proteinuria [Unknown]
